FAERS Safety Report 12302401 (Version 1)
Quarter: 2016Q2

REPORT INFORMATION
  Report Type: Spontaneous
  Country: US (occurrence: US)
  Receive Date: 20160425
  Receipt Date: 20160425
  Transmission Date: 20160815
  Serious: No
  Sender: FDA-Public Use
  Company Number: US-TEVA-654625USA

PATIENT
  Sex: Female

DRUGS (1)
  1. PROAIR HFA [Suspect]
     Active Substance: ALBUTEROL SULFATE
     Dosage: 2 PUFFS EVERY 4-6 HOURS
     Route: 065
     Dates: start: 20150708

REACTIONS (4)
  - Fatigue [Unknown]
  - Malaise [Unknown]
  - Drug dose omission [Unknown]
  - Skin infection [Unknown]
